FAERS Safety Report 17848795 (Version 1)
Quarter: 2020Q2

REPORT INFORMATION
  Report Type: Report from Study
  Country: None (occurrence: US)
  Receive Date: 20200602
  Receipt Date: 20200602
  Transmission Date: 20200714
  Serious: Yes (Hospitalization, Other)
  Sender: FDA-Public Use
  Company Number: US-BIOVITRUM-2019US2702

PATIENT
  Age: 58 Year
  Sex: Female

DRUGS (16)
  1. POTASSIUM [Concomitant]
     Active Substance: POTASSIUM
  2. CELEBREX [Concomitant]
     Active Substance: CELECOXIB
  3. PREDNISONE. [Concomitant]
     Active Substance: PREDNISONE
  4. LEVOTHYROXINE. [Concomitant]
     Active Substance: LEVOTHYROXINE
  5. LISINOPRIL. [Concomitant]
     Active Substance: LISINOPRIL
  6. PRAVASTATIN. [Concomitant]
     Active Substance: PRAVASTATIN
  7. KINERET [Suspect]
     Active Substance: ANAKINRA
     Route: 058
  8. PLAQUENIL [Concomitant]
     Active Substance: HYDROXYCHLOROQUINE SULFATE
  9. SEREVENT DISKUS [Concomitant]
     Active Substance: SALMETEROL XINAFOATE
  10. XARELTO [Concomitant]
     Active Substance: RIVAROXABAN
  11. PANTOPRAZOLE [Concomitant]
     Active Substance: PANTOPRAZOLE
  12. VIBERVI [Concomitant]
  13. FLACANIDE [Concomitant]
  14. SINGULAIR [Concomitant]
     Active Substance: MONTELUKAST SODIUM
  15. FUROSEMIDE. [Concomitant]
     Active Substance: FUROSEMIDE
  16. CLINDAMYCIN. [Concomitant]
     Active Substance: CLINDAMYCIN

REACTIONS (1)
  - Cellulitis [Unknown]

NARRATIVE: CASE EVENT DATE: 201908
